FAERS Safety Report 12529666 (Version 2)
Quarter: 2016Q4

REPORT INFORMATION
  Report Type: Report from Study
  Country: US (occurrence: US)
  Receive Date: 20160706
  Receipt Date: 20161115
  Transmission Date: 20170207
  Serious: Yes (Other)
  Sender: FDA-Public Use
  Company Number: US-AMGEN-USASL2016085950

PATIENT
  Age: 51 Year
  Sex: Female

DRUGS (5)
  1. ORENCIA [Suspect]
     Active Substance: ABATACEPT
     Indication: PRODUCT USED FOR UNKNOWN INDICATION
     Dosage: UNK
     Route: 065
  2. PREDNISONE. [Concomitant]
     Active Substance: PREDNISONE
     Dosage: UNK
  3. CIMZIA [Suspect]
     Active Substance: CERTOLIZUMAB PEGOL
     Indication: PRODUCT USED FOR UNKNOWN INDICATION
     Dosage: UNK
     Route: 065
  4. XELJANZ [Suspect]
     Active Substance: TOFACITINIB CITRATE
     Indication: PRODUCT USED FOR UNKNOWN INDICATION
     Dosage: UNK
     Route: 065
  5. ENBREL [Suspect]
     Active Substance: ETANERCEPT
     Indication: RHEUMATOID ARTHRITIS
     Dosage: UNK UNK, 2 TIMES/WK
     Route: 065
     Dates: start: 2001

REACTIONS (20)
  - Pneumonia [Unknown]
  - Precancerous cells present [Unknown]
  - Cholecystectomy [Unknown]
  - Intervertebral disc disorder [Unknown]
  - Injection site swelling [Unknown]
  - Coronary artery occlusion [Unknown]
  - Myocardial infarction [Recovered/Resolved]
  - Anxiety disorder [Unknown]
  - Rheumatoid arthritis [Unknown]
  - Transient ischaemic attack [Unknown]
  - Pyrexia [Unknown]
  - Blister [Unknown]
  - Gait disturbance [Unknown]
  - Drug hypersensitivity [Unknown]
  - Tooth abscess [Unknown]
  - Amnesia [Unknown]
  - Pustular psoriasis [Unknown]
  - Injection site reaction [Unknown]
  - Vascular shunt [Unknown]
  - Headache [Unknown]

NARRATIVE: CASE EVENT DATE: 201108
